FAERS Safety Report 9842071 (Version 2)
Quarter: 2014Q1

REPORT INFORMATION
  Report Type: Spontaneous
  Country: US (occurrence: US)
  Receive Date: 20140124
  Receipt Date: 20140124
  Transmission Date: 20141002
  Serious: Yes (Hospitalization, Disabling, Other)
  Sender: FDA-Public Use
  Company Number: US-009507513-1103USA03207

PATIENT
  Sex: Female
  Weight: 58.51 kg

DRUGS (10)
  1. FOSAMAX [Suspect]
     Indication: OSTEOPOROSIS
     Dosage: 70 MG, QW
     Route: 048
     Dates: start: 2000, end: 201001
  2. FOSAMAX [Suspect]
     Dosage: 10 MG, UNK
     Route: 048
     Dates: start: 20000407, end: 20010405
  3. MK-9278 [Concomitant]
     Dosage: 1 DF, QD
  4. NORVASC [Concomitant]
     Dosage: 2.5 MG, QD
     Route: 048
     Dates: start: 20051017
  5. TIMOPTIC [Concomitant]
     Dosage: 0.5 %, QPM
     Route: 047
  6. BEXTRA (VALDECOXIB) [Concomitant]
     Dosage: 10 MG, QD
     Dates: start: 20030612
  7. ASPIRIN [Concomitant]
     Dosage: 1 DF, QD
  8. FOSAMAX [Suspect]
     Dosage: 70 MG, UNK
     Dates: start: 20080305, end: 20080818
  9. ALENDRONATE SODIUM [Suspect]
     Dosage: 70 MG, UNK
     Dates: start: 20090107, end: 20100303
  10. MIACALCIN [Concomitant]
     Dosage: 1 DF, QD

REACTIONS (36)
  - Femur fracture [Unknown]
  - Femur fracture [Unknown]
  - Anaemia postoperative [Unknown]
  - Meniscus injury [Unknown]
  - Basal cell carcinoma [Unknown]
  - Visual field defect [Unknown]
  - Hypertension [Unknown]
  - Hypercholesterolaemia [Unknown]
  - Hormone level abnormal [Unknown]
  - Type V hyperlipidaemia [Unknown]
  - Glaucoma [Unknown]
  - Blood glucose increased [Unknown]
  - Osteoarthritis [Unknown]
  - Electrocardiogram abnormal [Unknown]
  - Synovial cyst [Unknown]
  - Urinary tract infection [Unknown]
  - Dermal cyst [Unknown]
  - Birth mark [Unknown]
  - Sciatica [Unknown]
  - Pharyngitis [Unknown]
  - Bursitis [Unknown]
  - Conjunctival hyperaemia [Unknown]
  - Cyst [Unknown]
  - Cataract [Unknown]
  - Meniscus injury [Unknown]
  - Trigger finger [Unknown]
  - Hyperplasia [Unknown]
  - Patellofemoral pain syndrome [Unknown]
  - Arthritis [Unknown]
  - Osteopenia [Unknown]
  - Device dislocation [Unknown]
  - Breast calcifications [Unknown]
  - Wound secretion [Recovering/Resolving]
  - Soft tissue disorder [Unknown]
  - Musculoskeletal chest pain [Unknown]
  - Muscle spasms [Unknown]
